FAERS Safety Report 10675310 (Version 3)
Quarter: 2015Q1

REPORT INFORMATION
  Report Type: Spontaneous
  Country: US (occurrence: US)
  Receive Date: 20141224
  Receipt Date: 20150125
  Transmission Date: 20150720
  Serious: No
  Sender: FDA-Public Use
  Company Number: US-GLAXOSMITHKLINE-A1085704A

PATIENT

DRUGS (7)
  1. BACTRIM [Concomitant]
     Active Substance: SULFAMETHOXAZOLE\TRIMETHOPRIM
  2. MEPRON [Suspect]
     Active Substance: ATOVAQUONE
     Indication: BABESIOSIS
     Route: 048
     Dates: start: 20140530, end: 20140603
  3. DIFLUCAN [Concomitant]
     Active Substance: FLUCONAZOLE
  4. IVERMECTIN. [Concomitant]
     Active Substance: IVERMECTIN
  5. ALBENDAZOLE [Concomitant]
     Active Substance: ALBENDAZOLE
  6. CLINDAMYCIN PHOSPHATE  + TRETINOIN [Concomitant]
  7. COARTEM [Concomitant]
     Active Substance: ARTEMETHER\LUMEFANTRINE

REACTIONS (14)
  - Prescribed overdose [Unknown]
  - Muscle fatigue [Unknown]
  - Vertigo [Not Recovered/Not Resolved]
  - Dizziness [Unknown]
  - Disturbance in attention [Unknown]
  - Aphasia [Unknown]
  - Cold sweat [Unknown]
  - Dyspnoea [Unknown]
  - Muscle tightness [Unknown]
  - Muscular weakness [Unknown]
  - Tremor [Unknown]
  - Memory impairment [Unknown]
  - Migraine [Unknown]
  - Asthenia [Unknown]

NARRATIVE: CASE EVENT DATE: 20140530
